FAERS Safety Report 22645659 (Version 1)
Quarter: 2023Q2

REPORT INFORMATION
  Report Type: Report from Study
  Country: CN (occurrence: CN)
  Receive Date: 20230627
  Receipt Date: 20230627
  Transmission Date: 20230721
  Serious: Yes (Other)
  Sender: FDA-Public Use
  Company Number: CN-JNJFOC-20230649748

PATIENT
  Age: 54 Year
  Sex: Male

DRUGS (7)
  1. BORTEZOMIB [Suspect]
     Active Substance: BORTEZOMIB
     Indication: Plasmacytoma
     Dosage: 1 MILLIGRAM/SQ. METER
     Route: 058
  2. DEXAMETHASONE [Suspect]
     Active Substance: DEXAMETHASONE
     Indication: Plasmacytoma
     Dosage: 40 MILLIGRAM
     Route: 048
  3. DOXORUBICIN [Suspect]
     Active Substance: DOXORUBICIN
     Indication: Plasmacytoma
     Dosage: 30 MILLIGRAM/SQ. METER
     Route: 042
  4. CISPLATIN [Suspect]
     Active Substance: CISPLATIN
     Indication: Plasmacytoma
     Dosage: 10 MILLIGRAM/SQ. METER
     Route: 042
  5. CYCLOPHOSPHAMIDE [Suspect]
     Active Substance: CYCLOPHOSPHAMIDE
     Indication: Plasmacytoma
     Dosage: 400 MILLIGRAM/SQ. METER
     Route: 042
  6. ETOPOSIDE [Suspect]
     Active Substance: ETOPOSIDE
     Indication: Plasmacytoma
     Dosage: 40 MILLIGRAM/SQ. METER
     Route: 042
  7. LENALIDOMIDE [Suspect]
     Active Substance: LENALIDOMIDE
     Indication: Plasmacytoma
     Dosage: 25 MILLIGRAM
     Route: 048

REACTIONS (10)
  - Neuropathy peripheral [Unknown]
  - Thrombocytopenia [Recovering/Resolving]
  - Neutropenia [Unknown]
  - Constipation [Unknown]
  - Anaemia [Unknown]
  - Fatigue [Unknown]
  - Lethargy [Unknown]
  - Dizziness [Unknown]
  - Flatulence [Unknown]
  - Off label use [Unknown]
